FAERS Safety Report 6645553-8 (Version None)
Quarter: 2010Q1

REPORT INFORMATION
  Report Type: 
  Country: None (occurrence: None)
  Receive Date: 20100323
  Receipt Date: 20100308
  Transmission Date: 20100710
  Serious: No
  Sender: FDA-Public Use
  Company Number: 2009BI023574

PATIENT
  Age: 44 Year
  Sex: Female

DRUGS (2)
  1. TYSABRI [Suspect]
     Indication: MULTIPLE SCLEROSIS
     Route: 042
     Dates: start: 20080215, end: 20090109
  2. TYSABRI [Suspect]
     Route: 042
     Dates: start: 20090528

REACTIONS (10)
  - CEREBRAL ATROPHY [None]
  - CLUMSINESS [None]
  - COGNITIVE DISORDER [None]
  - FALL [None]
  - FATIGUE [None]
  - MEMORY IMPAIRMENT [None]
  - MUSCLE TIGHTNESS [None]
  - PHARYNGEAL HYPOAESTHESIA [None]
  - SOMNOLENCE [None]
  - VISUAL IMPAIRMENT [None]
